FAERS Safety Report 6419890-6 (Version None)
Quarter: 2009Q4

REPORT INFORMATION
  Report Type: 
  Country: None (occurrence: None)
  Receive Date: 20091014
  Receipt Date: 20090303
  Transmission Date: 20100525
  Serious: Yes (Hospitalization)
  Sender: FDA-Public Use
  Company Number: DE-BFARM09025944

PATIENT
  Age: 64 Year
  Sex: Male
  Weight: 80 kg

DRUGS (2)
  1. ENALAPRIL MALEATE [Suspect]
     Indication: HYPERTENSION
     Dosage: 10 MG, ORAL
     Route: 048
  2. BISOPROLOL [Concomitant]

REACTIONS (1)
  - HEPATOTOXICITY [None]
